FAERS Safety Report 9924570 (Version 1)
Quarter: 2014Q1

REPORT INFORMATION
  Report Type: Spontaneous
  Country: US (occurrence: US)
  Receive Date: 20140226
  Receipt Date: 20140226
  Transmission Date: 20141002
  Serious: No
  Sender: FDA-Public Use
  Company Number: US-PFIZER INC-2014051315

PATIENT
  Age: 58 Year
  Sex: Female
  Weight: 78.01 kg

DRUGS (5)
  1. LYRICA [Suspect]
     Indication: FIBROMYALGIA
     Dosage: 75 MG, 3X/DAY
  2. FENTANYL [Concomitant]
     Indication: PAIN
     Dosage: UNK, EVERY SEVENTY TWO HOURS
  3. SOMA [Concomitant]
     Dosage: UNK
  4. PROLIA [Concomitant]
     Dosage: 2 DF, UNK (TWO INJECTION TWICE A YEAR)
  5. CODEINE [Concomitant]
     Indication: PAIN
     Dosage: UNK

REACTIONS (2)
  - Pain [Unknown]
  - Asthenia [Unknown]
